FAERS Safety Report 9364710 (Version 1)
Quarter: 2013Q2

REPORT INFORMATION
  Report Type: Spontaneous
  Country: US (occurrence: US)
  Receive Date: 20130624
  Receipt Date: 20130624
  Transmission Date: 20140414
  Serious: Yes (Other)
  Sender: FDA-Public Use
  Company Number: US-UCBSA-089326

PATIENT
  Sex: Female

DRUGS (4)
  1. CIMZIA [Suspect]
  2. CIMZIA [Suspect]
     Dosage: LOADING DOSE
  3. REMICADE [Suspect]
  4. PREDNISONE [Concomitant]

REACTIONS (4)
  - Pulmonary fibrosis [Unknown]
  - Interstitial lung disease [Unknown]
  - Arthritis [Unknown]
  - Incorrect dose administered [Unknown]
